FAERS Safety Report 8867656 (Version 1)
Quarter: 2012Q4

REPORT INFORMATION
  Report Type: 
  Country: US (occurrence: US)
  Receive Date: 20121025
  Receipt Date: 20121025
  Transmission Date: 20130627
  Serious: No
  Sender: FDA-Public Use
  Company Number: US-AMGEN-USASP2012018057

PATIENT
  Age: 54 Year
  Sex: Male

DRUGS (10)
  1. ENBREL [Suspect]
     Indication: PRODUCT USED FOR UNKNOWN INDICATION
     Dosage: 25 mg, qwk
     Dates: start: 2002
  2. LORATADINE [Concomitant]
     Dosage: 10 mg, UNK
  3. PLAQUENIL                          /00072603/ [Concomitant]
     Dosage: 200 mg, UNK
  4. NAPROSYN /00256201/ [Concomitant]
     Dosage: 375 mg, UNK
  5. DIOVAN [Concomitant]
     Dosage: 40 mg, UNK
  6. PREVACID [Concomitant]
     Dosage: 30 mg, UNK
  7. UROXATRAL [Concomitant]
     Dosage: 10 mg, UNK
  8. VITAMIN E                          /00110501/ [Concomitant]
     Dosage: 600 IU, UNK
  9. MULTIVITAMIN                       /00097801/ [Concomitant]
  10. ASPIRIN [Concomitant]
     Dosage: 81 mg, UNK

REACTIONS (1)
  - Upper respiratory tract infection [Unknown]
